FAERS Safety Report 18639147 (Version 2)
Quarter: 2020Q4

REPORT INFORMATION
  Report Type: Spontaneous
  Country: AU (occurrence: AU)
  Receive Date: 20201219
  Receipt Date: 20201231
  Transmission Date: 20210114
  Serious: Yes (Life-Threatening, Hospitalization, Other)
  Sender: FDA-Public Use
  Company Number: NVSC2020AU336091

PATIENT
  Age: 12 Year
  Weight: 41.8 kg

DRUGS (1)
  1. KYMRIAH [Suspect]
     Active Substance: TISAGENLECLEUCEL
     Indication: ACUTE LYMPHOCYTIC LEUKAEMIA
     Dosage: UNK
     Route: 065
     Dates: start: 20201109

REACTIONS (15)
  - Immune effector cell-associated neurotoxicity syndrome [Unknown]
  - Headache [Unknown]
  - Visual impairment [Unknown]
  - Cytokine release syndrome [Recovered/Resolved]
  - White matter lesion [Unknown]
  - Asthenia [Unknown]
  - Nervous system disorder [Recovering/Resolving]
  - Pneumothorax [Unknown]
  - Vision blurred [Unknown]
  - Lethargy [Unknown]
  - Vomiting [Unknown]
  - Somnolence [Unknown]
  - Immune effector cell-associated neurotoxicity syndrome [Recovered/Resolved]
  - Dyskinesia [Recovered/Resolved]
  - Confusional state [Unknown]

NARRATIVE: CASE EVENT DATE: 20201221
